FAERS Safety Report 23257514 (Version 1)
Quarter: 2023Q4

REPORT INFORMATION
  Report Type: Spontaneous
  Country: US (occurrence: None)
  Receive Date: 20231201
  Receipt Date: 20231201
  Transmission Date: 20240109
  Serious: Yes (Hospitalization)
  Sender: FDA-Public Use
  Company Number: None

PATIENT
  Sex: Male

DRUGS (4)
  1. CAPECITABINE [Suspect]
     Active Substance: CAPECITABINE
     Indication: Rectal cancer
     Dosage: FREQUENCY : AS DIRECTED;?
     Route: 048
     Dates: start: 202308
  2. CAPECITABINE [Suspect]
     Active Substance: CAPECITABINE
     Indication: Rectal cancer
     Dosage: FREQUENCY : AS DIRECTED;?
     Route: 048
     Dates: start: 202308
  3. ZYTIGA [Concomitant]
     Active Substance: ABIRATERONE ACETATE
  4. ABIRATEROE ACETATE [Concomitant]

REACTIONS (2)
  - Transient ischaemic attack [None]
  - Pneumonia [None]
